FAERS Safety Report 17174127 (Version 3)
Quarter: 2020Q1

REPORT INFORMATION
  Report Type: Spontaneous
  Country: US (occurrence: US)
  Receive Date: 20191219
  Receipt Date: 20200206
  Transmission Date: 20200409
  Serious: Yes (Hospitalization, Other)
  Sender: FDA-Public Use
  Company Number: US-HORIZON-RAV-0414-2019

PATIENT
  Age: 2 Year
  Sex: Male

DRUGS (1)
  1. RAVICTI [Suspect]
     Active Substance: GLYCEROL PHENYLBUTYRATE
     Indication: UREA CYCLE DISORDER
     Dosage: 1.4ML EVERY 8 HOURS (TOTAL DAILY DOSE 4.2ML)
     Route: 048
     Dates: start: 2018

REACTIONS (4)
  - Urea cycle disorder [Unknown]
  - Hypertension [Unknown]
  - Liver transplant [Unknown]
  - Condition aggravated [Unknown]

NARRATIVE: CASE EVENT DATE: 201912
